FAERS Safety Report 21751882 (Version 2)
Quarter: 2023Q2

REPORT INFORMATION
  Report Type: Report from Study
  Country: EG (occurrence: EG)
  Receive Date: 20221220
  Receipt Date: 20230523
  Transmission Date: 20230721
  Serious: Yes (Other)
  Sender: FDA-Public Use
  Company Number: EG-002147023-NVSC2022EG277979

PATIENT
  Age: 50 Year
  Sex: Male

DRUGS (2)
  1. COSENTYX [Suspect]
     Active Substance: SECUKINUMAB
     Indication: Psoriasis
     Dosage: 2 DOSAGE FORM, QMO
     Route: 058
     Dates: start: 201810, end: 20221001
  2. COSENTYX [Suspect]
     Active Substance: SECUKINUMAB
     Dosage: 2 DOSAGE FORM, QMO (STARTED 28 OR 29 NOV)
     Route: 058
     Dates: start: 202211

REACTIONS (2)
  - Rash [Recovering/Resolving]
  - Blood immunoglobulin E abnormal [Unknown]

NARRATIVE: CASE EVENT DATE: 20221001
